FAERS Safety Report 4575368-6 (Version None)
Quarter: 2005Q1

REPORT INFORMATION
  Report Type: 
  Country: None (occurrence: None)
  Receive Date: 20050131
  Receipt Date: 20050131
  Transmission Date: 20050727
  Serious: Yes (Hospitalization)
  Sender: FDA-Public Use
  Company Number: None

PATIENT
  Age: 40 Year
  Sex: Female
  Weight: 67.4 kg

DRUGS (3)
  1. TAXOL [Suspect]
     Indication: BREAST CANCER
     Dosage: 50 MG/M2  IV
     Route: 042
     Dates: start: 20041124, end: 20041223
  2. NAVELBINE [Suspect]
     Dosage: 20 MG/M2  IV
     Route: 042
     Dates: start: 20041124, end: 20041223
  3. NEUPOGEN [Concomitant]

REACTIONS (8)
  - BACTERAEMIA [None]
  - BAND NEUTROPHIL COUNT INCREASED [None]
  - CATHETER RELATED INFECTION [None]
  - CHILLS [None]
  - PLEURAL EFFUSION [None]
  - PYREXIA [None]
  - THROMBOCYTOPENIA [None]
  - WHITE BLOOD CELL COUNT INCREASED [None]
